FAERS Safety Report 12886413 (Version 1)
Quarter: 2016Q4

REPORT INFORMATION
  Report Type: Spontaneous
  Country: US (occurrence: US)
  Receive Date: 20161026
  Receipt Date: 20161026
  Transmission Date: 20170207
  Serious: Yes (Hospitalization)
  Sender: FDA-Public Use
  Company Number: US-UNITED THERAPEUTICS-UNT-2016-012873

PATIENT
  Sex: Male

DRUGS (5)
  1. ORENITRAM [Suspect]
     Active Substance: TREPROSTINIL
     Dosage: 2.625 MG, TID
     Route: 048
  2. SIMVASTATIN. [Suspect]
     Active Substance: SIMVASTATIN
     Indication: PRODUCT USED FOR UNKNOWN INDICATION
     Route: 065
  3. ORENITRAM [Suspect]
     Active Substance: TREPROSTINIL
     Dosage: 3 MG, TID
     Route: 048
     Dates: start: 20160428
  4. ORENITRAM [Suspect]
     Active Substance: TREPROSTINIL
     Indication: PULMONARY ARTERIAL HYPERTENSION
     Dosage: 2.75 MG, TID
     Route: 048
     Dates: start: 20160503
  5. ORENITRAM [Suspect]
     Active Substance: TREPROSTINIL
     Dosage: 4 MG, TID
     Route: 048

REACTIONS (8)
  - Headache [Unknown]
  - Myalgia [Unknown]
  - Abdominal discomfort [Unknown]
  - Muscle spasms [Not Recovered/Not Resolved]
  - Crepitations [Unknown]
  - Pneumonia [Unknown]
  - Dysgeusia [Unknown]
  - Pain in extremity [Not Recovered/Not Resolved]

NARRATIVE: CASE EVENT DATE: 20160817
